FAERS Safety Report 7257481-8 (Version None)
Quarter: 2011Q1

REPORT INFORMATION
  Report Type: 
  Country: None (occurrence: None)
  Receive Date: 20110129
  Receipt Date: 20100607
  Transmission Date: 20110831
  Serious: No
  Sender: FDA-Public Use
  Company Number: US-ABBOTT-10P-163-0640678-00

PATIENT
  Sex: Female
  Weight: 72.186 kg

DRUGS (15)
  1. OMEPRAZOLE [Concomitant]
     Indication: GASTROOESOPHAGEAL REFLUX DISEASE
  2. ALPRAZOLAM [Concomitant]
     Indication: ANXIETY
  3. TRAZODONE [Concomitant]
     Indication: INSOMNIA
  4. TRAZODONE [Concomitant]
     Indication: DEPRESSION
  5. HUMIRA [Suspect]
     Indication: CROHN'S DISEASE
     Dates: start: 20100414
  6. CLARINEX [Concomitant]
     Indication: HYPERSENSITIVITY
  7. PAXIL [Concomitant]
     Indication: DEPRESSION
  8. GEODON [Concomitant]
     Indication: PSYCHOTIC DISORDER
  9. LOPRIMIDE [Concomitant]
     Indication: CROHN'S DISEASE
  10. EXCEDRIN (MIGRAINE) [Suspect]
     Indication: MIGRAINE
  11. METHYLPHENIDATE [Concomitant]
     Indication: ATTENTION DEFICIT/HYPERACTIVITY DISORDER
  12. PENTASA [Concomitant]
     Indication: CROHN'S DISEASE
  13. SINGULAIR [Concomitant]
     Indication: HYPERSENSITIVITY
  14. LESCOL [Concomitant]
     Indication: BLOOD CHOLESTEROL INCREASED
  15. TOPIRAMATE [Concomitant]
     Indication: TREMOR

REACTIONS (3)
  - HEADACHE [None]
  - MIGRAINE [None]
  - ABDOMINAL DISCOMFORT [None]
